FAERS Safety Report 5809645-5 (Version None)
Quarter: 2008Q3

REPORT INFORMATION
  Report Type: 
  Country: None (occurrence: None)
  Receive Date: 20080711
  Receipt Date: 20080711
  Transmission Date: 20090109
  Serious: Yes (Death)
  Sender: FDA-Public Use
  Company Number: None

PATIENT
  Sex: Female
  Weight: 99.7913 kg

DRUGS (17)
  1. GEMCITABINE [Suspect]
     Indication: PANCREATIC CARCINOMA
     Dosage: 1000MG/M2, IV ON D1,8,15
     Route: 042
     Dates: start: 20080114, end: 20080128
  2. GEMCITABINE [Suspect]
     Indication: PANCREATIC CARCINOMA
     Dosage: 1000MG/M2, IV ON D1,8,15
     Route: 042
     Dates: start: 20080215, end: 20080229
  3. OXALIPLATIN [Suspect]
     Dosage: 85MG/M2,IV ON D1 + 15
     Route: 042
  4. CARVEDILOL [Concomitant]
  5. CHOLESTYRAMINE [Concomitant]
  6. FOLIC ACID [Concomitant]
  7. LASIX [Concomitant]
  8. LOPERAMIDE HCL [Concomitant]
  9. MULTI-VITAMIN [Concomitant]
  10. NYSTATIN [Concomitant]
  11. OMEPRAZOLE [Concomitant]
  12. PLAVIX [Concomitant]
  13. POTASSIUM CHLORIDE [Concomitant]
  14. OXYCODONE HCL [Concomitant]
  15. SPIRONOLACTONE [Concomitant]
  16. THIAMINE [Concomitant]
  17. INSULIN [Concomitant]

REACTIONS (8)
  - BACTERIAL INFECTION [None]
  - CARDIAC ARREST [None]
  - DEHYDRATION [None]
  - GENERALISED OEDEMA [None]
  - MALNUTRITION [None]
  - POST PROCEDURAL COMPLICATION [None]
  - PUPIL FIXED [None]
  - UNRESPONSIVE TO STIMULI [None]
